FAERS Safety Report 5064393-7 (Version None)
Quarter: 2006Q3

REPORT INFORMATION
  Report Type: 
  Country: None (occurrence: None)
  Receive Date: 20060726
  Receipt Date: 20060712
  Transmission Date: 20061208
  Serious: Yes (Other)
  Sender: FDA-Public Use
  Company Number: 2005033141

PATIENT
  Age: 42 Year
  Sex: Male
  Weight: 87.9978 kg

DRUGS (3)
  1. DILANTIN [Suspect]
     Indication: CONVULSION
     Dosage: 450 MG, ORAL
     Route: 048
  2. FLONASE [Concomitant]
  3. BENADRYL [Concomitant]

REACTIONS (12)
  - ANXIETY [None]
  - CONVULSION [None]
  - DEPRESSED MOOD [None]
  - DIZZINESS [None]
  - DRUG DOSE OMISSION [None]
  - HAEMORRHAGE [None]
  - INCORRECT DOSE ADMINISTERED [None]
  - INFLUENZA [None]
  - LOSS OF CONSCIOUSNESS [None]
  - NASOPHARYNGITIS [None]
  - NERVOUSNESS [None]
  - STRESS [None]
